FAERS Safety Report 6611932-8 (Version None)
Quarter: 2010Q1

REPORT INFORMATION
  Report Type: 
  Country: None (occurrence: None)
  Receive Date: 20100303
  Receipt Date: 20100123
  Transmission Date: 20100710
  Serious: Yes (Death, Hospitalization, Other)
  Sender: FDA-Public Use
  Company Number: US-BAXTER-2009BH011024

PATIENT
  Age: 82 Year
  Sex: Male

DRUGS (20)
  1. HEPARIN SODIUM INJECTION [Suspect]
     Indication: HAEMODIALYSIS
     Route: 065
     Dates: start: 20080720
  2. HEPARIN SODIUM INJECTION [Suspect]
     Dates: start: 20080801, end: 20080801
  3. PLAVIX [Concomitant]
     Indication: DRUG USE FOR UNKNOWN INDICATION
     Route: 065
  4. RENAGEL [Concomitant]
     Indication: DRUG USE FOR UNKNOWN INDICATION
     Route: 065
  5. COREG [Concomitant]
     Indication: DRUG USE FOR UNKNOWN INDICATION
     Route: 065
  6. FUROSEMIDE [Concomitant]
     Indication: DRUG USE FOR UNKNOWN INDICATION
     Route: 065
  7. SIMVASTATIN [Concomitant]
     Indication: DRUG USE FOR UNKNOWN INDICATION
     Route: 065
  8. WARFARIN SODIUM [Concomitant]
     Indication: DRUG USE FOR UNKNOWN INDICATION
     Route: 065
  9. VASOTEC [Concomitant]
     Indication: DRUG USE FOR UNKNOWN INDICATION
     Route: 065
  10. RENA-VITE [Concomitant]
     Indication: DRUG USE FOR UNKNOWN INDICATION
     Route: 048
  11. DIGOXIN [Concomitant]
     Indication: DRUG USE FOR UNKNOWN INDICATION
     Route: 065
  12. TAMSULOSIN HCL [Concomitant]
     Indication: DRUG USE FOR UNKNOWN INDICATION
     Route: 065
  13. ALBUMIN (HUMAN) [Concomitant]
     Indication: DRUG USE FOR UNKNOWN INDICATION
     Route: 065
  14. ALTEPLASE [Concomitant]
     Indication: DRUG USE FOR UNKNOWN INDICATION
     Route: 065
  15. DOBUTREX [Concomitant]
     Indication: DRUG USE FOR UNKNOWN INDICATION
     Route: 041
  16. RESTORIL [Concomitant]
     Indication: DRUG USE FOR UNKNOWN INDICATION
     Route: 065
  17. NITRO-BID [Concomitant]
     Indication: DRUG USE FOR UNKNOWN INDICATION
     Route: 065
  18. BUMEX [Concomitant]
     Indication: DRUG USE FOR UNKNOWN INDICATION
     Route: 065
  19. LEVAQUIN [Concomitant]
     Indication: DRUG USE FOR UNKNOWN INDICATION
     Route: 065
  20. ARANESP [Concomitant]
     Indication: DRUG USE FOR UNKNOWN INDICATION
     Route: 065

REACTIONS (20)
  - ANAEMIA [None]
  - ANOXIC ENCEPHALOPATHY [None]
  - AORTIC ANEURYSM [None]
  - ASTHENIA [None]
  - ATRIAL FIBRILLATION [None]
  - CARDIO-RESPIRATORY ARREST [None]
  - CONGESTIVE CARDIOMYOPATHY [None]
  - DEPRESSION [None]
  - DYSPNOEA EXERTIONAL [None]
  - ELECTROLYTE IMBALANCE [None]
  - ERYTHEMA [None]
  - HYPERTENSIVE NEPHROPATHY [None]
  - INJECTION SITE HAEMORRHAGE [None]
  - LIMB DISCOMFORT [None]
  - LUNG DISORDER [None]
  - OCCULT BLOOD POSITIVE [None]
  - PNEUMONIA [None]
  - RENAL FAILURE CHRONIC [None]
  - THROMBOCYTOPENIA [None]
  - URINE OUTPUT DECREASED [None]
